FAERS Safety Report 9511051 (Version 4)
Quarter: 2014Q1

REPORT INFORMATION
  Report Type: Report from Study
  Country: VN (occurrence: VN)
  Receive Date: 20130910
  Receipt Date: 20140306
  Transmission Date: 20141002
  Serious: Yes (Death)
  Sender: FDA-Public Use
  Company Number: VN-ROCHE-1271813

PATIENT
  Sex: Male

DRUGS (1)
  1. CAPECITABINE [Suspect]
     Indication: RECTAL CANCER
     Dosage: TOTAL 56 TABLETS.
     Route: 065

REACTIONS (3)
  - Respiratory failure [Fatal]
  - Circulatory collapse [Fatal]
  - Rectal cancer [Fatal]
